FAERS Safety Report 23358556 (Version 4)
Quarter: 2024Q1

REPORT INFORMATION
  Report Type: Spontaneous
  Country: PK (occurrence: PK)
  Receive Date: 20240102
  Receipt Date: 20240319
  Transmission Date: 20240410
  Serious: Yes (Other)
  Sender: FDA-Public Use
  Company Number: PK-PFIZER INC-202200553104

PATIENT
  Age: 76 Year
  Sex: Female

DRUGS (10)
  1. IBRANCE [Suspect]
     Active Substance: PALBOCICLIB
     Indication: Breast cancer metastatic
     Dosage: UNK
     Dates: start: 2020
  2. IBRANCE [Suspect]
     Active Substance: PALBOCICLIB
     Dosage: 125 MG (3 WEEKS ON 1 WEEK OFF)
     Route: 048
     Dates: start: 20220405
  3. IBRANCE [Suspect]
     Active Substance: PALBOCICLIB
     Dosage: 125 MG (3 WEEKS ON, 7 DAYS OFF)
     Route: 048
     Dates: start: 20220409
  4. IBRANCE [Suspect]
     Active Substance: PALBOCICLIB
     Dosage: 125 MG, 1X/DAY (10 DAYS THEN 10 DAYS REST)
     Route: 048
     Dates: start: 20220409
  5. IBRANCE [Suspect]
     Active Substance: PALBOCICLIB
     Dosage: 125MG, 1 DAILY FOR 10 DAYS THEN 10 DAYS REST
     Route: 048
     Dates: start: 202303
  6. IBRANCE [Suspect]
     Active Substance: PALBOCICLIB
     Dosage: 100 MG, 1 DAILY 7 DAYS ON, 10 DAYS OFF
     Route: 048
     Dates: start: 202310
  7. ARIMIDEX [Concomitant]
     Active Substance: ANASTROZOLE
     Dosage: UNK
     Dates: start: 2020
  8. ARIMIDEX [Concomitant]
     Active Substance: ANASTROZOLE
     Dosage: 1MG 1 DAILY CONTINUOUSLY
     Dates: start: 20230713
  9. ZOMETA [Concomitant]
     Active Substance: ZOLEDRONIC ACID
     Dosage: 4 MG X I/V X STAT ONCE 20-30 MIN EERY 3 MONTHS
     Route: 042
     Dates: start: 20230713
  10. PANADOL [Concomitant]
     Active Substance: ACETAMINOPHEN
     Dosage: UNK, 1+1+1 (3-5 DAYS)
     Dates: start: 20230713

REACTIONS (3)
  - Haemoglobin decreased [Unknown]
  - Off label use [Unknown]
  - Product prescribing error [Unknown]

NARRATIVE: CASE EVENT DATE: 20230922
